FAERS Safety Report 24387837 (Version 1)
Quarter: 2024Q4

REPORT INFORMATION
  Report Type: Spontaneous
  Country: US (occurrence: None)
  Receive Date: 20241001
  Receipt Date: 20241001
  Transmission Date: 20250114
  Serious: No
  Sender: Public
  Company Number: None

PATIENT
  Age: 66 Year
  Sex: Female
  Weight: 94.5 kg

DRUGS (15)
  1. VOQUEZNA [Suspect]
     Active Substance: VONOPRAZAN FUMARATE
     Indication: Gastrooesophageal reflux disease
     Dosage: OTHER QUANTITY : 1 TABLET(S);?FREQUENCY : DAILY;?
     Route: 048
     Dates: start: 20240918, end: 20240930
  2. CRESTOR [Concomitant]
     Active Substance: ROSUVASTATIN CALCIUM
  3. METOPROLOL [Concomitant]
     Active Substance: METOPROLOL
  4. synhroid [Concomitant]
  5. NASONEX [Concomitant]
     Active Substance: MOMETASONE FUROATE
  6. ZENPEP [Concomitant]
     Active Substance: PANCRELIPASE AMYLASE\PANCRELIPASE LIPASE\PANCRELIPASE PROTEASE
  7. VITAMIN D3 [Concomitant]
     Active Substance: CHOLECALCIFEROL
  8. Vitamin E + C [Concomitant]
  9. COENZYME Q10 [Concomitant]
     Active Substance: DIETARY SUPPLEMENT\UBIDECARENONE
  10. FOLAPRO [Concomitant]
  11. probiotic [Concomitant]
  12. Bio Complete 3 [Concomitant]
  13. multivitamin [Concomitant]
  14. CRANBERRY [Concomitant]
     Active Substance: CRANBERRY
  15. I-glutimen [Concomitant]

REACTIONS (4)
  - Rash macular [None]
  - Rash papular [None]
  - Adverse drug reaction [None]
  - Stevens-Johnson syndrome [None]

NARRATIVE: CASE EVENT DATE: 20240920
